FAERS Safety Report 8760161 (Version 1)
Quarter: 2012Q4

REPORT INFORMATION
  Report Type: 
  Country: CN (occurrence: CN)
  Receive Date: 20120829
  Receipt Date: 20120829
  Transmission Date: 20130627
  Serious: Yes (Other)
  Sender: FDA-Public Use
  Company Number: CN-ROCHE-1107316

PATIENT
  Age: 1 Year
  Sex: Male
  Weight: 14 kg

DRUGS (1)
  1. ROCEPHIN [Suspect]
     Indication: UPPER RESPIRATORY TRACT INFECTION
     Route: 041
     Dates: start: 20080604, end: 20080604

REACTIONS (2)
  - Chills [Recovering/Resolving]
  - Tic [Recovering/Resolving]
